FAERS Safety Report 5909386-X (Version None)
Quarter: 2008Q4

REPORT INFORMATION
  Report Type: 
  Country: None (occurrence: None)
  Receive Date: 20081002
  Receipt Date: 20080918
  Transmission Date: 20090506
  Serious: Yes (Hospitalization)
  Sender: FDA-Public Use
  Company Number: GB-DEXPHARM-20081087

PATIENT
  Age: 76 Year
  Sex: Female

DRUGS (2)
  1. OMEPRAZOLE [Suspect]
     Dosage: ORAL
     Route: 048
     Dates: start: 19990101, end: 20080418
  2. MAGNESIUM SULFATE [Concomitant]

REACTIONS (1)
  - HYPOMAGNESAEMIA [None]
